FAERS Safety Report 8743492 (Version 2)
Quarter: 2013Q1

REPORT INFORMATION
  Report Type: Report from Study
  Country: US (occurrence: US)
  Receive Date: 20120824
  Receipt Date: 20130122
  Transmission Date: 20140127
  Serious: Yes (Other)
  Sender: FDA-Public Use
  Company Number: US-ROCHE-1088496

PATIENT
  Age: 77 Year
  Sex: Female

DRUGS (5)
  1. RITUXAN [Suspect]
     Indication: RHEUMATOID ARTHRITIS
     Route: 042
     Dates: start: 20110903
  2. RITUXAN [Suspect]
     Route: 042
     Dates: start: 20120306
  3. RITUXAN [Suspect]
     Route: 042
     Dates: start: 20120320
  4. RITUXAN [Suspect]
     Dosage: 2 EVERY 6 MONTHS
     Route: 042
     Dates: start: 20110830, end: 20120321
  5. GABAPENTIN [Concomitant]
     Route: 065
     Dates: start: 20120803

REACTIONS (15)
  - Blood pressure increased [Unknown]
  - Knee arthroplasty [Unknown]
  - Arthralgia [Unknown]
  - Pain [Unknown]
  - Feeling abnormal [Unknown]
  - Blood pressure [Unknown]
  - Diarrhoea [Unknown]
  - Colitis [Unknown]
  - Paraesthesia [Unknown]
  - Arthralgia [Unknown]
  - Urinary tract infection [Unknown]
  - Sinusitis [Unknown]
  - Peripheral nerve infection [Unknown]
  - Tremor [Unknown]
  - Infection [Unknown]
